FAERS Safety Report 6819557-6 (Version None)
Quarter: 2010Q2

REPORT INFORMATION
  Report Type: 
  Country: None (occurrence: None)
  Receive Date: 20100630
  Receipt Date: 20100615
  Transmission Date: 20101027
  Serious: Yes (Hospitalization)
  Sender: FDA-Public Use
  Company Number: 2010002020

PATIENT
  Age: 34 Year
  Sex: Female

DRUGS (13)
  1. ERLOTINIB (ERLOTINIB) (TABLET) (ERLOTINIB) [Suspect]
     Indication: GLIOBLASTOMA
     Dosage: 150 MG, QD, ORAL
     Route: 048
     Dates: start: 20090831, end: 20100406
  2. BEVACIZUMAB [Suspect]
     Indication: GLIOBLASTOMA
     Dates: start: 20090908
  3. TEMODAR [Suspect]
     Indication: GLIOBLASTOMA
     Dosage: 200 MG/M2
     Dates: start: 20090831, end: 20100315
  4. LISINOPRIL [Concomitant]
  5. HYDROCHLOROTHIAZIDE [Concomitant]
  6. MELATONIN (MELATONIN) [Concomitant]
  7. PRILOSEC (OMEPRAZOLE) [Concomitant]
  8. BACTRIM [Concomitant]
  9. NORCO [Concomitant]
  10. MINOCYCLINE HCL [Concomitant]
  11. ZOFRAN [Concomitant]
  12. PROZAC [Concomitant]
  13. CLINDAMYCIN HCL [Concomitant]

REACTIONS (8)
  - BACK PAIN [None]
  - BACTERIAL INFECTION [None]
  - BLOOD CULTURE POSITIVE [None]
  - CANDIDIASIS [None]
  - CONVULSION [None]
  - DEHYDRATION [None]
  - DEVICE RELATED INFECTION [None]
  - PANCREATITIS [None]
